FAERS Safety Report 4979754-1 (Version None)
Quarter: 2006Q2

REPORT INFORMATION
  Report Type: 
  Country: None (occurrence: None)
  Receive Date: 20060418
  Receipt Date: 20060405
  Transmission Date: 20061013
  Serious: Yes (Other)
  Sender: FDA-Public Use
  Company Number: 2006031822

PATIENT
  Sex: Male

DRUGS (7)
  1. NEURONTIN [Suspect]
     Indication: ILL-DEFINED DISORDER
  2. GABAPENTIN [Suspect]
     Indication: ILL-DEFINED DISORDER
  3. ZOLOFT [Suspect]
     Indication: ILL-DEFINED DISORDER
  4. ALCOHOL (ETHANOL) [Suspect]
     Indication: ILL-DEFINED DISORDER
  5. RISPERDAL [Suspect]
     Indication: ILL-DEFINED DISORDER
  6. PHENOBARBITAL TAB [Suspect]
     Indication: ILL-DEFINED DISORDER
  7. LOTREL [Concomitant]

REACTIONS (6)
  - ALCOHOL POISONING [None]
  - CONTUSION [None]
  - DEPRESSED MOOD [None]
  - MUSCULOSKELETAL CHEST PAIN [None]
  - ROAD TRAFFIC ACCIDENT [None]
  - SUICIDAL IDEATION [None]
